FAERS Safety Report 7240368-4 (Version None)
Quarter: 2011Q1

REPORT INFORMATION
  Report Type: 
  Country: None (occurrence: None)
  Receive Date: 20110113
  Receipt Date: 20110105
  Transmission Date: 20110831
  Serious: Yes (Hospitalization, Other)
  Sender: FDA-Public Use
  Company Number: 015271

PATIENT
  Sex: Male

DRUGS (13)
  1. FLOXACILLIN SODIUM [Concomitant]
  2. CLARITHROMYCIN [Concomitant]
  3. FOLIC ACID [Concomitant]
  4. RAMIPRIL [Concomitant]
  5. ATENOLOL [Concomitant]
  6. ATORVASTATIN CALCIUM [Concomitant]
  7. ERYTHROMYCIN [Concomitant]
  8. PENICILLIN V /00001801/ [Concomitant]
  9. CLINDAMYCIN [Concomitant]
  10. CERTOLIZUMAB PEGOL (CERTOLIZUMAB PEGOL) [Suspect]
     Indication: RHEUMATOID ARTHRITIS
     Dosage: (400 MG 1XMONTH SUBCUTANEOUS), (SUBCONJUNCTIVAL)
     Route: 058
     Dates: start: 20030826, end: 20091212
  11. CERTOLIZUMAB PEGOL (CERTOLIZUMAB PEGOL) [Suspect]
     Indication: RHEUMATOID ARTHRITIS
     Dosage: (400 MG 1XMONTH SUBCUTANEOUS), (SUBCONJUNCTIVAL)
     Route: 058
     Dates: start: 20100202
  12. METHOTREXATE [Concomitant]
  13. METFORMIN [Concomitant]

REACTIONS (6)
  - CELLULITIS [None]
  - BLOOD SODIUM DECREASED [None]
  - THERAPEUTIC RESPONSE DECREASED [None]
  - ECZEMA [None]
  - MYOCARDIAL ISCHAEMIA [None]
  - OEDEMA PERIPHERAL [None]
